FAERS Safety Report 5213385-3 (Version None)
Quarter: 2007Q1

REPORT INFORMATION
  Report Type: 
  Country: None (occurrence: None)
  Receive Date: 20070119
  Receipt Date: 20061017
  Transmission Date: 20070707
  Serious: No
  Sender: FDA-Public Use
  Company Number: US-GLAXOSMITHKLINE-A0623937A

PATIENT

DRUGS (1)
  1. ARIXTRA [Suspect]
     Dosage: 2.5MG PER DAY
     Route: 058

REACTIONS (6)
  - DEPRESSED MOOD [None]
  - EFFUSION [None]
  - JOINT RANGE OF MOTION DECREASED [None]
  - PAIN [None]
  - POST PROCEDURAL DRAINAGE [None]
  - SWELLING [None]
